FAERS Safety Report 9609959 (Version 3)
Quarter: 2014Q3

REPORT INFORMATION
  Report Type: Spontaneous
  Country: US (occurrence: US)
  Receive Date: 20131009
  Receipt Date: 20140826
  Transmission Date: 20150326
  Serious: Yes (Hospitalization)
  Sender: FDA-Public Use
  Company Number: US-B.I. PHARMACEUTICALS,INC./RIDGEFIELD-2013-BI-31482BP

PATIENT
  Age: 81 Year
  Sex: Female

DRUGS (17)
  1. DESONIDE. [Concomitant]
     Active Substance: DESONIDE
     Route: 061
  2. MIRALAX [Concomitant]
     Active Substance: POLYETHYLENE GLYCOL 3350
     Dosage: 17 G
     Route: 065
  3. AMLODIPINE [Concomitant]
     Active Substance: AMLODIPINE BESYLATE
     Dosage: 5 MG
     Route: 065
  4. METHADONE [Concomitant]
     Active Substance: METHADONE HYDROCHLORIDE
     Dosage: 7.5 MG
     Route: 065
  5. HUMULIN NOS [Concomitant]
     Active Substance: INSULIN HUMAN
     Dosage: 40 U
     Route: 065
  6. FERREX [Concomitant]
     Dosage: 150 MG
     Route: 065
  7. LOSARTAN [Concomitant]
     Active Substance: LOSARTAN
     Dosage: 50 MG
     Route: 065
  8. SPIRONOLACTONE. [Concomitant]
     Active Substance: SPIRONOLACTONE
     Dosage: 12.5 NR
     Route: 065
  9. CARVEDILOL. [Concomitant]
     Active Substance: CARVEDILOL
     Dosage: 3.125 MG
     Route: 065
  10. AMITRIPTYLINE [Concomitant]
     Active Substance: AMITRIPTYLINE
     Dosage: 10 MG
     Route: 065
  11. HUMALOG [Concomitant]
     Active Substance: INSULIN LISPRO
     Dosage: DOSAGE: SLIDING SCALE
     Route: 058
  12. ISOSORBIDE [Concomitant]
     Active Substance: ISOSORBIDE
     Dosage: 120 MG
     Route: 065
  13. PENTOXIFYLLINE. [Concomitant]
     Active Substance: PENTOXIFYLLINE
     Dosage: 200 MG
     Route: 065
  14. ZOFRAN [Concomitant]
     Active Substance: ONDANSETRON HYDROCHLORIDE
     Route: 065
  15. CEFUROXIME. [Concomitant]
     Active Substance: CEFUROXIME
     Dosage: 150 MG
     Route: 065
  16. PRADAXA [Suspect]
     Active Substance: DABIGATRAN ETEXILATE MESYLATE
     Indication: ATRIAL FIBRILLATION
     Dosage: 300 MG
     Route: 048
     Dates: end: 20130814
  17. ATORVASTATIN [Concomitant]
     Active Substance: ATORVASTATIN
     Dosage: 80 MG
     Route: 065

REACTIONS (3)
  - Gastrointestinal haemorrhage [Unknown]
  - Thrombocytopenia [Unknown]
  - Anaemia [Unknown]

NARRATIVE: CASE EVENT DATE: 2013
